FAERS Safety Report 6545372-7 (Version None)
Quarter: 2010Q1

REPORT INFORMATION
  Report Type: 
  Country: None (occurrence: None)
  Receive Date: 20100114
  Receipt Date: 20090918
  Transmission Date: 20100710
  Serious: No
  Sender: FDA-Public Use
  Company Number: 2009BM000235

PATIENT
  Age: 14 Year
  Sex: Female
  Weight: 48 kg

DRUGS (1)
  1. KUVAN [Suspect]
     Indication: PHENYLKETONURIA
     Dosage: 20 MG;DAILY;PO
     Route: 048
     Dates: start: 20090807, end: 20090828

REACTIONS (2)
  - DECREASED APPETITE [None]
  - NAUSEA [None]
